FAERS Safety Report 4605191-5 (Version None)
Quarter: 2005Q1

REPORT INFORMATION
  Report Type: 
  Country: None (occurrence: None)
  Receive Date: 20050311
  Receipt Date: 20050311
  Transmission Date: 20050727
  Serious: Yes (Disabling)
  Sender: FDA-Public Use
  Company Number: None

PATIENT
  Age: 61 Year
  Sex: Female

DRUGS (1)
  1. PHENYTOIN SUSPENSION 125/5 ALPHARMA [Suspect]
     Indication: CONVULSION
     Dosage: 400 MG QD PO
     Route: 048
     Dates: start: 20041104, end: 20041207

REACTIONS (3)
  - ANTICONVULSANT DRUG LEVEL INCREASED [None]
  - DEPRESSED LEVEL OF CONSCIOUSNESS [None]
  - DYSPNOEA [None]
